FAERS Safety Report 7605581-2 (Version None)
Quarter: 2011Q3

REPORT INFORMATION
  Report Type: 
  Country: None (occurrence: None)
  Receive Date: 20110705
  Receipt Date: 20110617
  Transmission Date: 20111222
  Serious: Yes (Other)
  Sender: FDA-Public Use
  Company Number: 2011MA007723

PATIENT
  Age: 71 Year
  Sex: Male

DRUGS (3)
  1. TAMSULOSIN HYDROCHLORIDE [Suspect]
     Indication: PROSTATIC DISORDER
  2. DIAMICRON [Concomitant]
  3. ASPIRIN [Concomitant]

REACTIONS (3)
  - FLOPPY IRIS SYNDROME [None]
  - CATARACT NUCLEAR [None]
  - THERAPEUTIC RESPONSE DECREASED [None]
